FAERS Safety Report 20700313 (Version 1)
Quarter: 2022Q2

REPORT INFORMATION
  Report Type: Spontaneous
  Country: JP (occurrence: JP)
  Receive Date: 20220412
  Receipt Date: 20220412
  Transmission Date: 20220721
  Serious: Yes (Other)
  Sender: FDA-Public Use
  Company Number: JP-PFIZER INC-202200528654

PATIENT
  Age: 53 Year
  Sex: Female

DRUGS (5)
  1. DEXMEDETOMIDINE HYDROCHLORIDE [Interacting]
     Active Substance: DEXMEDETOMIDINE HYDROCHLORIDE
     Indication: Sedation
     Dosage: FROM DAY 0
  2. DEXMEDETOMIDINE HYDROCHLORIDE [Interacting]
     Active Substance: DEXMEDETOMIDINE HYDROCHLORIDE
     Dosage: ON DAY4, AT 23:00, 0.14 UG/KG/HR
  3. DEXMEDETOMIDINE HYDROCHLORIDE [Interacting]
     Active Substance: DEXMEDETOMIDINE HYDROCHLORIDE
     Dosage: 0.28 UG/KG/HR
  4. CARVEDILOL [Interacting]
     Active Substance: CARVEDILOL
     Dosage: 2.5 MG (ON DAY 1)
     Route: 048
  5. CARVEDILOL [Interacting]
     Active Substance: CARVEDILOL
     Dosage: 5 MG (ON DAY 2)
     Route: 048

REACTIONS (4)
  - Drug interaction [Recovered/Resolved]
  - Atrioventricular block complete [Recovered/Resolved]
  - Loss of consciousness [Recovered/Resolved]
  - Seizure [Recovered/Resolved]
